FAERS Safety Report 8548112-5 (Version None)
Quarter: 2012Q3

REPORT INFORMATION
  Report Type: 
  Country: None (occurrence: None)
  Receive Date: 20120730
  Receipt Date: 20120723
  Transmission Date: 20120928
  Serious: Yes (Hospitalization)
  Sender: FDA-Public Use
  Company Number: US-009507513-1207USA009950

PATIENT

DRUGS (2)
  1. NILUTAMIDE [Suspect]
     Dosage: 300 MG, QD
     Route: 048
  2. ZOCOR [Suspect]
     Dosage: 10 MG, HS
     Route: 048

REACTIONS (7)
  - HYPOTENSION [None]
  - VOMITING [None]
  - HEPATITIS VIRAL [None]
  - DRUG-INDUCED LIVER INJURY [None]
  - NAUSEA [None]
  - PORTAL VEIN THROMBOSIS [None]
  - FATIGUE [None]
